FAERS Safety Report 9024941 (Version 1)
Quarter: 2013Q1

REPORT INFORMATION
  Report Type: Spontaneous
  Country: US (occurrence: US)
  Receive Date: 20130121
  Receipt Date: 20130121
  Transmission Date: 20140127
  Serious: Yes (Hospitalization)
  Sender: FDA-Public Use
  Company Number: US-JNJFOC-20130105205

PATIENT
  Age: 80 None
  Sex: Female

DRUGS (1)
  1. REMICADE [Suspect]
     Indication: ANAL FISTULA
     Route: 042
     Dates: start: 201110

REACTIONS (2)
  - Pericarditis [Unknown]
  - Pericardial effusion [Unknown]
